FAERS Safety Report 20808032 (Version 2)
Quarter: 2022Q2

REPORT INFORMATION
  Report Type: Spontaneous
  Country: DE (occurrence: DE)
  Receive Date: 20220510
  Receipt Date: 20220514
  Transmission Date: 20220721
  Serious: Yes (Other)
  Sender: FDA-Public Use
  Company Number: DE-TEVA-2022-DE-2034457

PATIENT
  Age: 41 Year
  Sex: Male

DRUGS (1)
  1. COPAXONE [Suspect]
     Active Substance: GLATIRAMER ACETATE
     Route: 065
     Dates: start: 20201001

REACTIONS (4)
  - Injection site haematoma [Not Recovered/Not Resolved]
  - Injection site induration [Unknown]
  - Flushing [Recovered/Resolved]
  - Livedo reticularis [Unknown]

NARRATIVE: CASE EVENT DATE: 20220429
